FAERS Safety Report 5615764-9 (Version None)
Quarter: 2008Q1

REPORT INFORMATION
  Report Type: 
  Country: None (occurrence: None)
  Receive Date: 20080206
  Receipt Date: 20080130
  Transmission Date: 20080703
  Serious: Yes (Hospitalization)
  Sender: FDA-Public Use
  Company Number: CH-BRISTOL-MYERS SQUIBB COMPANY-14019806

PATIENT
  Age: 72 Year
  Sex: Female

DRUGS (6)
  1. CETUXIMAB [Suspect]
     Indication: COLORECTAL CANCER
     Dosage: RECENT INFUSION:29/NOV/07,CYCLE:3
     Route: 042
     Dates: start: 20071115, end: 20071227
  2. OXALIPLATIN [Suspect]
     Indication: COLORECTAL CANCER
     Dosage: RECENT INFUSION:29/NOV/07,CYCLE:2
     Route: 042
     Dates: start: 20071115, end: 20071227
  3. FLUOROURACIL [Suspect]
     Indication: COLORECTAL CANCER
     Dosage: RECENT INFUSION:30/NOV/07,CYCLE:3
     Dates: start: 20071115, end: 20071227
  4. CPT-11 [Suspect]
     Indication: COLORECTAL CANCER
     Dosage: RECENT INFUSION:30/NOV/07,CYCLE:3
     Dates: start: 20071122, end: 20071227
  5. LEUCOVORIN CALCIUM [Suspect]
     Indication: COLORECTAL CANCER
     Dosage: RECENT INFUSION:29/NOV/07,CYCLE:3
     Dates: start: 20071115, end: 20071227
  6. BEVACIZUMAB [Suspect]
     Indication: COLORECTAL CANCER
     Dosage: RECENT INFUSION:29/NOV/07,CYCLE:2
     Dates: start: 20071115, end: 20071227

REACTIONS (4)
  - DIARRHOEA [None]
  - FATIGUE [None]
  - MUCOSAL INFLAMMATION [None]
  - PALMAR-PLANTAR ERYTHRODYSAESTHESIA SYNDROME [None]
